FAERS Safety Report 8715804 (Version 2)
Quarter: 2012Q4

REPORT INFORMATION
  Report Type: 
  Country: ZA (occurrence: ZA)
  Receive Date: 20120809
  Receipt Date: 20120924
  Transmission Date: 20130627
  Serious: Yes (Death)
  Sender: FDA-Public Use
  Company Number: ZA-ELI_LILLY_AND_COMPANY-ZA201208002322

PATIENT
  Age: 18 Month
  Sex: Female

DRUGS (3)
  1. HUMATROPE [Suspect]
     Indication: HYPOPITUITARISM
     Dosage: 0.3 mg, qd
     Dates: start: 201103
  2. THYROXINE [Concomitant]
  3. HYDROCORTISONE [Concomitant]

REACTIONS (1)
  - Death [Fatal]
